FAERS Safety Report 9423701 (Version 2)
Quarter: 2013Q4

REPORT INFORMATION
  Report Type: Spontaneous
  Country: US (occurrence: US)
  Receive Date: 20130727
  Receipt Date: 20131127
  Transmission Date: 20140711
  Serious: Yes (Hospitalization, Other)
  Sender: FDA-Public Use
  Company Number: PHHY2013US079303

PATIENT
  Sex: Male

DRUGS (4)
  1. BACLOFEN [Suspect]
     Dosage: UNK UKN, UNK
     Route: 048
  2. HYDROCHLOROTHIAZIDE [Suspect]
     Dosage: UNK UKN, UNK
  3. COUMADIN//WARFARIN SODIUM [Suspect]
     Dosage: UNK UKN, UNK
  4. GABLOFEN [Suspect]
     Indication: MUSCLE SPASTICITY
     Dosage: 550 UG PER DAY
     Route: 037

REACTIONS (4)
  - Hypersensitivity vasculitis [Unknown]
  - Purpura [Unknown]
  - Pain [Unknown]
  - Muscle spasticity [Unknown]
